FAERS Safety Report 13955534 (Version 1)
Quarter: 2017Q3

REPORT INFORMATION
  Report Type: Spontaneous
  Country: US (occurrence: US)
  Receive Date: 20170911
  Receipt Date: 20170911
  Transmission Date: 20171128
  Serious: Yes (Hospitalization)
  Sender: FDA-Public Use
  Company Number: US-UNITED THERAPEUTICS-UNT-2017-012954

PATIENT
  Age: 54 Year
  Sex: Male
  Weight: 58.5 kg

DRUGS (1)
  1. REMODULIN [Suspect]
     Active Substance: TREPROSTINIL
     Indication: PULMONARY HYPERTENSION
     Dosage: 0.035 ?G/KG, CONTINUING
     Route: 058
     Dates: start: 20160908

REACTIONS (3)
  - Peripheral swelling [Unknown]
  - Deep vein thrombosis [Unknown]
  - Confusional state [Unknown]

NARRATIVE: CASE EVENT DATE: 20170903
